FAERS Safety Report 4433015-8 (Version None)
Quarter: 2004Q3

REPORT INFORMATION
  Report Type: 
  Country: None (occurrence: None)
  Receive Date: 20040721
  Receipt Date: 20040521
  Transmission Date: 20050211
  Serious: Yes (Hospitalization)
  Sender: FDA-Public Use
  Company Number: OMPQ-PR-0405S-0406(0)

PATIENT
  Age: 60 Year
  Sex: Female

DRUGS (5)
  1. OMNIPAQUE 180 [Suspect]
     Indication: NON-HODGKIN'S LYMPHOMA
     Dosage: 100 ML, SINGLE DOSE, I.V.
     Route: 042
     Dates: start: 20040519, end: 20040519
  2. HYDROCHLOROTHIAZIDE [Concomitant]
  3. AMBIEN [Concomitant]
  4. ATENOLOL [Concomitant]
  5. NIFEDIPINE [Concomitant]

REACTIONS (1)
  - ANAPHYLACTIC REACTION [None]
